FAERS Safety Report 4846982-5 (Version None)
Quarter: 2005Q4

REPORT INFORMATION
  Report Type: 
  Country: None (occurrence: None)
  Receive Date: 20051207
  Receipt Date: 20051130
  Transmission Date: 20060501
  Serious: Yes (Hospitalization)
  Sender: FDA-Public Use
  Company Number: US-JNJFOC-20051200708

PATIENT
  Sex: Female
  Weight: 56.7 kg

DRUGS (1)
  1. DURAGESIC-100 [Suspect]
     Dosage: ONE 50 UG/HR PATCH PLUS ONE 12.5 UG/HR PATCH
     Route: 062

REACTIONS (2)
  - DEHYDRATION [None]
  - PNEUMONIA [None]
